FAERS Safety Report 7163911 (Version 5)
Quarter: 2013Q4

REPORT INFORMATION
  Report Type: Spontaneous
  Country: US (occurrence: US)
  Receive Date: 20091102
  Receipt Date: 20131223
  Transmission Date: 20140711
  Serious: Yes (Hospitalization, Other)
  Sender: FDA-Public Use
  Company Number: US-BIOGENIDEC-2009BI034656

PATIENT
  Age: 57 Year
  Sex: Male

DRUGS (8)
  1. AVONEX [Suspect]
     Indication: MULTIPLE SCLEROSIS
     Route: 030
  2. AVONEX [Suspect]
     Indication: MULTIPLE SCLEROSIS
     Route: 030
     Dates: start: 20080207
  3. METFORMIN [Concomitant]
  4. BENICAR [Concomitant]
  5. LYRICA [Concomitant]
     Indication: PAIN
  6. METHADONE [Concomitant]
     Indication: PAIN
  7. FENTANYL [Concomitant]
     Indication: PAIN
  8. OXYCODONE [Concomitant]
     Indication: PAIN

REACTIONS (3)
  - Renal failure [Recovered/Resolved]
  - Myocardial infarction [Recovered/Resolved]
  - Nephropathy toxic [Recovered/Resolved]
